FAERS Safety Report 16891241 (Version 3)
Quarter: 2019Q4

REPORT INFORMATION
  Report Type: Spontaneous
  Country: US (occurrence: US)
  Receive Date: 20191007
  Receipt Date: 20191104
  Transmission Date: 20200122
  Serious: Yes (Hospitalization)
  Sender: FDA-Public Use
  Company Number: US-PFIZER INC-2019422562

PATIENT
  Age: 37 Year
  Sex: Female

DRUGS (3)
  1. DEXTROMETHORPHAN HYDROBROMIDE. [Suspect]
     Active Substance: DEXTROMETHORPHAN HYDROBROMIDE
     Indication: DEPRESSION
     Dosage: 360 TO 760MG (3-6 TIMES THE MAXIMUM DAILY DOSE)
  2. DEXTROMETHORPHAN HYDROBROMIDE. [Suspect]
     Active Substance: DEXTROMETHORPHAN HYDROBROMIDE
     Dosage: 1400MG OF DEXTROMETHORPHAN (5 TIMES THE RECOMMENDED DAILY DOSE) OVER THE COURSE OF 3 DAYS
     Route: 048
  3. DEXTROMETHORPHAN HYDROBROMIDE. [Suspect]
     Active Substance: DEXTROMETHORPHAN HYDROBROMIDE
     Indication: ALTERED STATE OF CONSCIOUSNESS
     Dosage: 240 MG, DAILY
     Route: 048

REACTIONS (6)
  - Drug abuse [Unknown]
  - Intentional self-injury [Unknown]
  - Psychotic symptom [Recovering/Resolving]
  - Toxicity to various agents [Unknown]
  - Intentional overdose [Unknown]
  - Mania [Unknown]
